FAERS Safety Report 23960333 (Version 1)
Quarter: 2024Q2

REPORT INFORMATION
  Report Type: Spontaneous
  Country: US (occurrence: US)
  Receive Date: 20240611
  Receipt Date: 20240611
  Transmission Date: 20240715
  Serious: No
  Sender: FDA-Public Use
  Company Number: US-AMGEN-USASP2024113263

PATIENT

DRUGS (1)
  1. IVABRADINE [Suspect]
     Active Substance: IVABRADINE
     Indication: Heart rate decreased
     Dosage: UNK, MEAN DOSE OF 12.9 MG (+-) 2.7 (10 MG: 37.2%, 15 MG: 60.6%)
     Route: 065

REACTIONS (1)
  - Hypotension [Recovered/Resolved]
